FAERS Safety Report 16150746 (Version 7)
Quarter: 2025Q1

REPORT INFORMATION
  Report Type: Spontaneous
  Country: CA (occurrence: CA)
  Receive Date: 20190403
  Receipt Date: 20250221
  Transmission Date: 20250409
  Serious: Yes (Other)
  Sender: NOVARTIS
  Company Number: PHHY2019CA073146

PATIENT
  Age: 24 Year
  Sex: Male

DRUGS (7)
  1. CYCLOSPORINE [Suspect]
     Active Substance: CYCLOSPORINE
     Indication: Lung transplant
     Route: 065
  2. CYCLOSPORINE [Suspect]
     Active Substance: CYCLOSPORINE
     Indication: Immunosuppressant drug therapy
  3. MYCOPHENOLATE SODIUM [Suspect]
     Active Substance: MYCOPHENOLATE SODIUM
     Indication: Lung transplant
     Route: 065
  4. MYCOPHENOLATE SODIUM [Suspect]
     Active Substance: MYCOPHENOLATE SODIUM
     Indication: Immunosuppressant drug therapy
  5. PREDNISONE [Suspect]
     Active Substance: PREDNISONE
     Indication: Lung transplant
     Route: 065
  6. PREDNISONE [Suspect]
     Active Substance: PREDNISONE
     Indication: Immunosuppressant drug therapy
  7. VALGANCICLOVIR [Concomitant]
     Active Substance: VALGANCICLOVIR
     Indication: Antiviral prophylaxis
     Route: 065

REACTIONS (4)
  - Epstein-Barr virus infection [Recovering/Resolving]
  - Smooth muscle cell neoplasm [Recovering/Resolving]
  - Hepatic neoplasm [Recovering/Resolving]
  - Product use in unapproved indication [Unknown]
